FAERS Safety Report 23160237 (Version 1)
Quarter: 2023Q4

REPORT INFORMATION
  Report Type: Spontaneous
  Country: CN (occurrence: None)
  Receive Date: 20231108
  Receipt Date: 20231108
  Transmission Date: 20240110
  Serious: Yes (Other)
  Sender: FDA-Public Use
  Company Number: 2023A250144

PATIENT
  Age: 26665 Day
  Sex: Male
  Weight: 80 kg

DRUGS (1)
  1. DAPAGLIFLOZIN [Suspect]
     Active Substance: DAPAGLIFLOZIN
     Indication: Blood glucose
     Route: 048
     Dates: start: 20231019

REACTIONS (1)
  - Marasmus [Recovering/Resolving]

NARRATIVE: CASE EVENT DATE: 20231026
